FAERS Safety Report 12248978 (Version 2)
Quarter: 2017Q1

REPORT INFORMATION
  Report Type: Report from Study
  Country: IT (occurrence: IT)
  Receive Date: 20160408
  Receipt Date: 20170324
  Transmission Date: 20170428
  Serious: Yes (Other)
  Sender: FDA-Public Use
  Company Number: IT-TEVA-649097ISR

PATIENT
  Age: 32 Month
  Sex: Male

DRUGS (21)
  1. METHOTREXATE. [Suspect]
     Active Substance: METHOTREXATE
     Dosage: IN BLOCK AA, BB, CC (TRIPLE INTRATHECAL THERAPY)
     Route: 037
  2. METHOTREXATE. [Suspect]
     Active Substance: METHOTREXATE
     Indication: POST TRANSPLANT LYMPHOPROLIFERATIVE DISORDER
     Dosage: HIGH DOSE; 1.5 TO 3 G/M2 (IN BLOCK AA AND IN BLOCK BB)
     Route: 065
  3. IFOSFAMIDE. [Suspect]
     Active Substance: IFOSFAMIDE
     Indication: POST TRANSPLANT LYMPHOPROLIFERATIVE DISORDER
     Dosage: 600 TO 800 MG/M2 DAILY X5 (PART OF BLOCK AA)
     Route: 065
  4. ETOPOSIDE. [Suspect]
     Active Substance: ETOPOSIDE
     Indication: POST TRANSPLANT LYMPHOPROLIFERATIVE DISORDER
     Dosage: 80 TO 100 MG/M2 DAILY (PART OF BLOCK AA.1 IN 12 HR)
     Route: 065
  5. ETOPOSIDE. [Suspect]
     Active Substance: ETOPOSIDE
     Dosage: 200 MG/M2 DAILY; BLOCK CC
     Route: 065
  6. ETOPOSIDE. [Suspect]
     Active Substance: ETOPOSIDE
     Dosage: FROM 80 TO 100 MG/M2 PER DAY X 2
     Route: 065
  7. CYTARABINE. [Suspect]
     Active Substance: CYTARABINE
     Dosage: IN BLOCK AA, BB, CC (TRIPLE INTRATHECAL THERAPY)
     Route: 037
  8. DEXAMETHASONE. [Suspect]
     Active Substance: DEXAMETHASONE
     Dosage: 20 MG/M2 DAILY; 20 MG/M2 PER DAY; BLOCK CC. X5
     Route: 065
  9. CYCLOPHOSPHAMIDE. [Suspect]
     Active Substance: CYCLOPHOSPHAMIDE
     Indication: POST TRANSPLANT LYMPHOPROLIFERATIVE DISORDER
     Dosage: 160 TO 200 MG/M2 DAILY (BLOCK BB)X 5
     Route: 065
  10. VINCRISTINE [Suspect]
     Active Substance: VINCRISTINE
     Indication: POST TRANSPLANT LYMPHOPROLIFERATIVE DISORDER
     Dosage: 1.5 MG/M2 DAILY; 1.5 MG/M2 (IN BLOCK AA AND BB)
     Route: 065
  11. ETOPOSIDE. [Suspect]
     Active Substance: ETOPOSIDE
     Dosage: 100 MG/M2, 100 MG/M2 Q 12 HOURS X 4;
     Route: 065
  12. RITUXIMAB [Suspect]
     Active Substance: RITUXIMAB
     Indication: POST TRANSPLANT LYMPHOPROLIFERATIVE DISORDER
     Dosage: 4 CYCLES
     Route: 065
  13. CYTARABINE. [Suspect]
     Active Substance: CYTARABINE
     Indication: POST TRANSPLANT LYMPHOPROLIFERATIVE DISORDER
     Dosage: 120 TO 150 MG/M2 EVERY 12 HOURS (PART OF BLOCK AA.1 IN 12 HR)
     Route: 065
  14. DEXAMETHASONE. [Suspect]
     Active Substance: DEXAMETHASONE
     Indication: POST TRANSPLANT LYMPHOPROLIFERATIVE DISORDER
     Dosage: 10 MG/M2 DAILY; 10 MG/M2 PER DAY (PART OF BLOCK AA AND BB). X5
     Route: 065
  15. DAUNORUBICIN [Suspect]
     Active Substance: DAUNORUBICIN
     Indication: POST TRANSPLANT LYMPHOPROLIFERATIVE DISORDER
     Dosage: 20 TO 25 MG/M2 PER
     Route: 065
  16. CYTARABINE. [Suspect]
     Active Substance: CYTARABINE
     Dosage: 6000 MG/M2 DAILY; BLOCK CC. X4
     Route: 065
  17. METHYLPREDNISOLONE. [Suspect]
     Active Substance: METHYLPREDNISOLONE
     Indication: POST TRANSPLANT LYMPHOPROLIFERATIVE DISORDER
     Dosage: IN BLOCK AA, BB, CC (TRIPLE INTRATHECAL THERAPY)
     Route: 037
  18. VINDESINE [Suspect]
     Active Substance: VINDESINE
     Indication: POST TRANSPLANT LYMPHOPROLIFERATIVE DISORDER
     Dosage: 3  DAILY; 3 MG/M2; BLOCK CC
     Route: 065
  19. DAUNOMYCIN [Suspect]
     Active Substance: DAUNORUBICIN
     Indication: POST TRANSPLANT LYMPHOPROLIFERATIVE DISORDER
     Dosage: 20 TO 25 MG/M2 DAILY (BLOCK BB). X2
     Route: 065
  20. CYCLOPHOSPHAMIDE. [Suspect]
     Active Substance: CYCLOPHOSPHAMIDE
     Dosage: 160 TO 200 MG/M2 DAILY
     Route: 065
  21. ARA-C [Suspect]
     Active Substance: CYTARABINE
     Indication: POST TRANSPLANT LYMPHOPROLIFERATIVE DISORDER
     Dosage: 3000 MG/M2 EVERY 12 HOURS X 4(PART OF BLOCK AA.1 IN 12 HR)
     Route: 065

REACTIONS (5)
  - Acute kidney injury [Unknown]
  - Neurotoxicity [Unknown]
  - Toxicity to various agents [Unknown]
  - Nervous system disorder [Unknown]
  - Renal impairment [Unknown]
